FAERS Safety Report 5447921-9 (Version None)
Quarter: 2007Q3

REPORT INFORMATION
  Report Type: 
  Country: None (occurrence: None)
  Receive Date: 20070910
  Receipt Date: 20070829
  Transmission Date: 20080115
  Serious: Yes (Hospitalization)
  Sender: FDA-Public Use
  Company Number: DE-PFIZER INC-2007072297

PATIENT
  Sex: Male

DRUGS (1)
  1. CABASERIL [Suspect]
     Route: 048
     Dates: start: 20040101, end: 20070101

REACTIONS (3)
  - OEDEMA PERIPHERAL [None]
  - PERICARDIAL EFFUSION [None]
  - WEIGHT INCREASED [None]
